FAERS Safety Report 17125059 (Version 2)
Quarter: 2019Q4

REPORT INFORMATION
  Report Type: Report from Study
  Country: US (occurrence: US)
  Receive Date: 20191206
  Receipt Date: 20191216
  Transmission Date: 20200122
  Serious: Yes (Other)
  Sender: FDA-Public Use
  Company Number: US-ACTELION-A-US2019-197491

PATIENT
  Sex: Female
  Weight: 55.33 kg

DRUGS (3)
  1. UPTRAVI [Suspect]
     Active Substance: SELEXIPAG
     Indication: PULMONARY ARTERIAL HYPERTENSION
     Dosage: 400 MCG, BID
     Route: 048
  2. UPTRAVI [Suspect]
     Active Substance: SELEXIPAG
     Dosage: 200 MCG, BID
     Route: 048
  3. OPSUMIT [Suspect]
     Active Substance: MACITENTAN
     Indication: PULMONARY ARTERIAL HYPERTENSION
     Dosage: 10 MG, QD
     Route: 048

REACTIONS (25)
  - Swelling face [Unknown]
  - Migraine [Unknown]
  - Pain in extremity [Unknown]
  - Sensory disturbance [Unknown]
  - Fluid retention [Unknown]
  - Ear infection [Unknown]
  - Ear pain [Unknown]
  - Pain [Unknown]
  - Chills [Unknown]
  - Blood pressure increased [Unknown]
  - Red blood cell count decreased [Unknown]
  - Herpes zoster [Unknown]
  - Pyrexia [Unknown]
  - Nasopharyngitis [Unknown]
  - Influenza [Unknown]
  - Hypoacusis [Unknown]
  - Oedema peripheral [Unknown]
  - White blood cell count decreased [Unknown]
  - Mastoiditis [Unknown]
  - Hypoglycaemia [Unknown]
  - Headache [Unknown]
  - Blood glucose decreased [Unknown]
  - Precancerous lesion [Unknown]
  - Pain in jaw [Unknown]
  - Influenza like illness [Unknown]
